FAERS Safety Report 9467963 (Version 2)
Quarter: 2016Q3

REPORT INFORMATION
  Report Type: Spontaneous
  Country: US (occurrence: US)
  Receive Date: 20130821
  Receipt Date: 20160721
  Transmission Date: 20161109
  Serious: Yes (Other)
  Sender: FDA-Public Use
  Company Number: US-RANBAXY-2013US-72329

PATIENT
  Age: 45 Year
  Sex: Male

DRUGS (10)
  1. ZOLPIDEM [Interacting]
     Active Substance: ZOLPIDEM\ZOLPIDEM TARTRATE
     Indication: MAJOR DEPRESSION
     Dosage: 10 MG, SINGLE
     Route: 065
  2. PAROXETINE EXTENDED-RELEASE [Interacting]
     Active Substance: PAROXETINE
     Indication: MAJOR DEPRESSION
     Dosage: 12.5 MG, DAILY
     Route: 065
  3. ZOLPIDEM [Suspect]
     Active Substance: ZOLPIDEM\ZOLPIDEM TARTRATE
     Indication: MAJOR DEPRESSION
     Dosage: 10 MG, DAILY
     Route: 048
  4. QUETIAPINE. [Suspect]
     Active Substance: QUETIAPINE
     Indication: MAJOR DEPRESSION
     Dosage: 25 MG, DAILY
     Route: 065
  5. PAROXETINE EXTENDED-RELEASE [Suspect]
     Active Substance: PAROXETINE
     Indication: MAJOR DEPRESSION
     Dosage: 25 MG, DAILY
     Route: 065
  6. ZOLPIDEM [Interacting]
     Active Substance: ZOLPIDEM\ZOLPIDEM TARTRATE
     Indication: INSOMNIA
  7. ZOLPIDEM [Interacting]
     Active Substance: ZOLPIDEM\ZOLPIDEM TARTRATE
     Indication: INSOMNIA
  8. QUETIAPINE. [Suspect]
     Active Substance: QUETIAPINE
     Indication: MAJOR DEPRESSION
     Dosage: 100 MG, DAILY
     Route: 065
  9. LORAZEPAM. [Suspect]
     Active Substance: LORAZEPAM
     Indication: MAJOR DEPRESSION
     Dosage: 1 MG, BID (PRN)
     Route: 065
  10. PAROXETINE EXTENDED-RELEASE [Suspect]
     Active Substance: PAROXETINE
     Indication: MAJOR DEPRESSION
     Dosage: 37.5 MG, DAILY
     Route: 065

REACTIONS (11)
  - Amnesia [Unknown]
  - Glassy eyes [Unknown]
  - Catatonia [Unknown]
  - Speech disorder [Unknown]
  - Drug interaction [Unknown]
  - Confusional state [Unknown]
  - Overdose [Unknown]
  - Seizure [Unknown]
  - Homicide [Unknown]
  - Aggression [Unknown]
  - Incoherent [None]
